FAERS Safety Report 4296063-7 (Version None)
Quarter: 2004Q1

REPORT INFORMATION
  Report Type: 
  Country: None (occurrence: None)
  Receive Date: 20040212
  Receipt Date: 20040209
  Transmission Date: 20041129
  Serious: Yes (Hospitalization)
  Sender: FDA-Public Use
  Company Number: 200410355GDS

PATIENT
  Age: 80 Year
  Sex: Female

DRUGS (8)
  1. ASPIRIN CARDIO (ACETYLSALICYLIC ACID) [Suspect]
     Dosage: 100 MG, QD, ORAL
     Route: 048
     Dates: end: 20040115
  2. SINTROM [Suspect]
     Indication: ATRIAL FIBRILLATION
     Dosage: PRN, ORAL
     Route: 048
     Dates: start: 20031201, end: 20040115
  3. SINTROM [Suspect]
     Indication: DEEP VEIN THROMBOSIS
     Dosage: PRN, ORAL
     Route: 048
     Dates: start: 20031201, end: 20040115
  4. SINTROM [Suspect]
     Indication: HYPERTENSION
     Dosage: PRN, ORAL
     Route: 048
     Dates: start: 20031201, end: 20040115
  5. SYMFONA (GINGKO BILOBA EXTRACT) [Suspect]
     Dosage: 60 MG, BID, ORAL
     Route: 048
     Dates: end: 20040115
  6. SEROPRAM (CITALOPRAM HYDROBROMIDE) [Suspect]
     Dosage: 20 MG, TOTAL DAILY, ORAL
     Route: 048
     Dates: end: 20040115
  7. APROVEL [Concomitant]
  8. DIGOXIN [Concomitant]

REACTIONS (10)
  - ABDOMINAL PAIN LOWER [None]
  - ANAEMIA [None]
  - DEVICE FAILURE [None]
  - DRUG INTERACTION POTENTIATION [None]
  - FLATULENCE [None]
  - HAEMATOMA [None]
  - LOCALISED OSTEOARTHRITIS [None]
  - OVERDOSE [None]
  - PROTHROMBIN TIME PROLONGED [None]
  - RETROPERITONEAL HAEMATOMA [None]
